FAERS Safety Report 21254969 (Version 5)
Quarter: 2022Q3

REPORT INFORMATION
  Report Type: Report from Study
  Country: US (occurrence: US)
  Receive Date: 20220825
  Receipt Date: 20220926
  Transmission Date: 20221027
  Serious: No
  Sender: FDA-Public Use
  Company Number: US-NOVARTISTESTPH-NVSC2022US186669

PATIENT
  Age: 39 Year
  Sex: Female

DRUGS (2)
  1. KESIMPTA [Suspect]
     Active Substance: OFATUMUMAB
     Indication: Product used for unknown indication
     Dosage: UNK
     Route: 065
     Dates: start: 20220815
  2. KESIMPTA [Suspect]
     Active Substance: OFATUMUMAB
     Dosage: UNK
     Route: 065
     Dates: start: 20220830

REACTIONS (17)
  - Balance disorder [Not Recovered/Not Resolved]
  - Somnolence [Recovering/Resolving]
  - Pain in extremity [Recovering/Resolving]
  - Sensitive skin [Recovering/Resolving]
  - Feeling hot [Recovering/Resolving]
  - Feeling cold [Recovering/Resolving]
  - Pain [Recovering/Resolving]
  - Dizziness [Recovering/Resolving]
  - Flushing [Recovering/Resolving]
  - Headache [Recovering/Resolving]
  - Chills [Recovering/Resolving]
  - Pyrexia [Recovering/Resolving]
  - Accidental exposure to product [Unknown]
  - Drug dose omission by device [Unknown]
  - Device malfunction [Unknown]
  - Hypoaesthesia [Not Recovered/Not Resolved]
  - Anxiety [Recovered/Resolved]

NARRATIVE: CASE EVENT DATE: 20220830
